FAERS Safety Report 9343968 (Version 1)
Quarter: 2013Q2

REPORT INFORMATION
  Report Type: Spontaneous
  Country: GB (occurrence: GB)
  Receive Date: 20130612
  Receipt Date: 20130612
  Transmission Date: 20140414
  Serious: Yes (Other)
  Sender: FDA-Public Use
  Company Number: PHFR2013GB003307

PATIENT
  Sex: 0

DRUGS (1)
  1. DESFERAL [Suspect]
     Indication: TRANSFUSION
     Dosage: UNK 2G/250ML

REACTIONS (2)
  - Cardiac failure [Unknown]
  - Renal failure [Unknown]
